FAERS Safety Report 8018318-2 (Version None)
Quarter: 2012Q1

REPORT INFORMATION
  Report Type: 
  Country: None (occurrence: None)
  Receive Date: 20120103
  Receipt Date: 20120103
  Transmission Date: 20120608
  Serious: Yes (Death)
  Sender: FDA-Public Use
  Company Number: AU-B.I. PHARMACEUTICALS,INC./RIDGEFIELD-2011-AU-02412AU

PATIENT
  Sex: Female
  Weight: 62.5 kg

DRUGS (23)
  1. KEFLEX [Concomitant]
     Dosage: 2000 MG
     Route: 048
  2. PANADOL OSTEO [Concomitant]
     Dosage: 3990 MG
     Route: 048
  3. VAGIFEM [Concomitant]
     Dosage: 1.7857 MCG
     Route: 067
  4. PRADAXA [Suspect]
     Indication: CEREBROVASCULAR ACCIDENT PROPHYLAXIS
     Dosage: 220 MG
     Dates: start: 20100119
  5. ELOCON [Concomitant]
     Dosage: 0.02%
     Route: 061
  6. OSTEOVIT D [Concomitant]
     Route: 048
  7. TAZAC [Concomitant]
     Dosage: 300 MG
     Route: 048
  8. LERCANIDIPINE [Concomitant]
     Dosage: 10 MG
     Route: 048
  9. NORSPAN [Concomitant]
     Dosage: 0.7143 MG
     Route: 062
  10. PROTOS [Concomitant]
     Dosage: 2 G
     Route: 048
  11. SIGMACORT [Concomitant]
     Dosage: 1%
     Route: 061
  12. SOTALOL HYDROCHLORIDE [Concomitant]
     Dosage: 160 MG
     Route: 048
  13. CELESTONE-M [Concomitant]
     Dosage: 0.02%
     Route: 061
  14. RHINOCORT [Concomitant]
     Dosage: 256 MCG
     Route: 045
  15. ROZEX [Concomitant]
     Dosage: 0.75%
     Route: 061
  16. PRADAXA [Suspect]
     Indication: ATRIAL FIBRILLATION
  17. FERRO-F-TAB [Concomitant]
     Dosage: 310MG/350MCG
     Route: 048
  18. MAGMIN [Concomitant]
     Dosage: 1000 MG
     Route: 048
  19. MICARDIS [Concomitant]
     Dosage: 80 MG
     Route: 048
  20. ACETAMINOPHEN [Concomitant]
     Dosage: 3000 MG
     Route: 048
  21. DUPHALAC [Concomitant]
     Dosage: 3.34G/5ML
     Route: 048
  22. NEXIUM [Concomitant]
     Dosage: 80 MG
     Route: 048
  23. VAGIFEM [Concomitant]
     Dosage: 25 MCG
     Route: 067

REACTIONS (1)
  - CEREBROVASCULAR ACCIDENT [None]
